FAERS Safety Report 10172859 (Version 6)
Quarter: 2016Q2

REPORT INFORMATION
  Report Type: Report from Study
  Country: HK (occurrence: HK)
  Receive Date: 20140515
  Receipt Date: 20160428
  Transmission Date: 20160815
  Serious: Yes (Life-Threatening, Hospitalization)
  Sender: FDA-Public Use
  Company Number: HK-ROCHE-1358608

PATIENT
  Age: 66 Year
  Sex: Female
  Weight: 52.5 kg

DRUGS (54)
  1. CYCLOPHOSPHAMIDE. [Suspect]
     Active Substance: CYCLOPHOSPHAMIDE
     Indication: DIFFUSE LARGE B-CELL LYMPHOMA
     Dosage: DATE OF MOST RECENT DOSE (1185 MG) PRIOR TO FIRST EPISODE NEUTROPENIA: 18/FEB/2014?DATE OF MOST RECE
     Route: 042
     Dates: start: 20140128
  2. LEVOFLOXACIN. [Concomitant]
     Active Substance: LEVOFLOXACIN
     Route: 065
     Dates: start: 20140430, end: 20140502
  3. ITRACONAZOLE. [Concomitant]
     Active Substance: ITRACONAZOLE
     Route: 065
     Dates: start: 20140430, end: 20140508
  4. CHLORHEXIDINE GLUCONATE. [Concomitant]
     Active Substance: CHLORHEXIDINE GLUCONATE
     Route: 065
     Dates: start: 20140503, end: 20140513
  5. EMEND [Concomitant]
     Active Substance: APREPITANT
     Route: 065
     Dates: start: 20140424, end: 20140426
  6. EMEND [Concomitant]
     Active Substance: APREPITANT
     Route: 065
     Dates: start: 20140515, end: 20140517
  7. ZOFRAN [Concomitant]
     Active Substance: ONDANSETRON HYDROCHLORIDE
     Route: 065
     Dates: start: 20140515, end: 20140515
  8. PARACETAMOL [Concomitant]
     Active Substance: ACETAMINOPHEN
     Route: 065
     Dates: start: 20140218, end: 20140218
  9. PREDNISOLONE. [Concomitant]
     Active Substance: PREDNISOLONE
     Indication: PROPHYLAXIS
     Route: 065
     Dates: start: 20140515, end: 20140519
  10. PREDNISOLONE. [Concomitant]
     Active Substance: PREDNISOLONE
     Route: 065
     Dates: start: 20140424, end: 20140424
  11. DOXORUBICIN [Suspect]
     Active Substance: DOXORUBICIN
     Indication: DIFFUSE LARGE B-CELL LYMPHOMA
     Dosage: DATE OF MOST RECENT DOSE (79 MG) PRIOR TO FIRST EPISODE NEUTROPENIA: 18/FEB/2014,?DATE OF MOST RECEN
     Route: 042
     Dates: start: 20140128
  12. PREDNISOLONE. [Suspect]
     Active Substance: PREDNISOLONE
     Indication: DIFFUSE LARGE B-CELL LYMPHOMA
     Dosage: DATE OF MOST RECENT DOSE (100 MG) : 22/FEB/2014?DATE OF MOST RECENT DOSE (100 MG) PRIOR TO SECOND EP
     Route: 048
     Dates: start: 20140128
  13. SLOW K [Concomitant]
     Active Substance: POTASSIUM CHLORIDE
     Indication: HYPOKALAEMIA
     Route: 065
     Dates: start: 20140204, end: 20140224
  14. ITRACONAZOLE. [Concomitant]
     Active Substance: ITRACONAZOLE
     Route: 065
     Dates: start: 20140606, end: 20140703
  15. MAGNESIUM HYDROXIDE / ALUMINUM HYDROXIDE / SIMETHICONE [Concomitant]
     Route: 065
     Dates: start: 20140218
  16. CHLORHEXIDINE GLUCONATE. [Concomitant]
     Active Substance: CHLORHEXIDINE GLUCONATE
     Route: 065
     Dates: start: 20140211, end: 20140512
  17. EMEND [Concomitant]
     Active Substance: APREPITANT
     Indication: PROPHYLAXIS
     Dosage: PROPHYLAXIS FOR THE SIDE EFFECTS OF CHOP
     Route: 065
     Dates: start: 20140128, end: 20140130
  18. EMEND [Concomitant]
     Active Substance: APREPITANT
     Route: 065
     Dates: start: 20140218, end: 20140220
  19. PARACETAMOL [Concomitant]
     Active Substance: ACETAMINOPHEN
     Route: 065
     Dates: start: 20140204, end: 20140204
  20. PARACETAMOL [Concomitant]
     Active Substance: ACETAMINOPHEN
     Route: 065
     Dates: start: 20140211, end: 20140211
  21. METHYLPREDNISOLON [Concomitant]
     Active Substance: METHYLPREDNISOLONE
     Route: 065
     Dates: start: 20140403, end: 20140403
  22. METHYLPREDNISOLON [Concomitant]
     Active Substance: METHYLPREDNISOLONE
     Route: 065
     Dates: start: 20140605, end: 20140605
  23. TAZOCIN [Concomitant]
     Active Substance: PIPERACILLIN SODIUM\TAZOBACTAM SODIUM
     Indication: INFECTION PROPHYLAXIS
     Route: 065
     Dates: start: 20140503, end: 20140508
  24. ZOFRAN [Concomitant]
     Active Substance: ONDANSETRON HYDROCHLORIDE
     Route: 065
     Dates: start: 20140403, end: 20140403
  25. METHYLPREDNISOLON [Concomitant]
     Active Substance: METHYLPREDNISOLONE
     Route: 065
     Dates: start: 20140211, end: 20140211
  26. SODIUM CHLORIDE. [Concomitant]
     Active Substance: SODIUM CHLORIDE
     Route: 065
     Dates: start: 20140519, end: 20140519
  27. ALLOPURINOL. [Concomitant]
     Active Substance: ALLOPURINOL
     Route: 065
     Dates: start: 20140128, end: 20140401
  28. LEVOFLOXACIN. [Concomitant]
     Active Substance: LEVOFLOXACIN
     Indication: INFECTION PROPHYLAXIS
     Route: 065
     Dates: start: 20140207, end: 20140213
  29. ITRACONAZOLE. [Concomitant]
     Active Substance: ITRACONAZOLE
     Indication: INFECTION PROPHYLAXIS
     Route: 065
     Dates: start: 20140207, end: 20140213
  30. ITRACONAZOLE. [Concomitant]
     Active Substance: ITRACONAZOLE
     Route: 065
     Dates: start: 20140226, end: 20140305
  31. MAGNESIUM HYDROXIDE / ALUMINUM HYDROXIDE / SIMETHICONE [Concomitant]
     Indication: EPIGASTRIC DISCOMFORT
     Route: 065
     Dates: start: 20140207, end: 20140213
  32. ZOFRAN [Concomitant]
     Active Substance: ONDANSETRON HYDROCHLORIDE
     Route: 065
     Dates: start: 20140218, end: 20140218
  33. PARACETAMOL [Concomitant]
     Active Substance: ACETAMINOPHEN
     Route: 065
     Dates: start: 20140515, end: 20140515
  34. PARACETAMOL [Concomitant]
     Active Substance: ACETAMINOPHEN
     Route: 065
     Dates: start: 20140605, end: 20140605
  35. SODIUM CHLORIDE. [Concomitant]
     Active Substance: SODIUM CHLORIDE
     Indication: HYPOKALAEMIA
     Route: 065
     Dates: start: 20140505, end: 20140505
  36. SLOW K [Concomitant]
     Active Substance: POTASSIUM CHLORIDE
     Route: 065
     Dates: start: 20140505, end: 20140507
  37. LEVOFLOXACIN. [Concomitant]
     Active Substance: LEVOFLOXACIN
     Route: 065
     Dates: start: 20140606
  38. EMEND [Concomitant]
     Active Substance: APREPITANT
     Route: 065
     Dates: start: 20140403, end: 20140405
  39. ZOFRAN [Concomitant]
     Active Substance: ONDANSETRON HYDROCHLORIDE
     Route: 065
     Dates: start: 20140127, end: 20140127
  40. ZOFRAN [Concomitant]
     Active Substance: ONDANSETRON HYDROCHLORIDE
     Route: 065
     Dates: start: 20140424, end: 20140424
  41. PARACETAMOL [Concomitant]
     Active Substance: ACETAMINOPHEN
     Indication: PREMEDICATION
     Route: 065
     Dates: start: 20140128, end: 20140128
  42. PARACETAMOL [Concomitant]
     Active Substance: ACETAMINOPHEN
     Route: 065
     Dates: start: 20140424, end: 20140424
  43. METHYLPREDNISOLON [Concomitant]
     Active Substance: METHYLPREDNISOLONE
     Route: 065
     Dates: start: 20140424, end: 20140424
  44. PEPCIDINE [Concomitant]
     Active Substance: FAMOTIDINE
     Indication: EPIGASTRIC DISCOMFORT
     Route: 065
     Dates: start: 20140204
  45. LEVOFLOXACIN. [Concomitant]
     Active Substance: LEVOFLOXACIN
     Route: 065
     Dates: start: 20140226, end: 20140305
  46. PARACETAMOL [Concomitant]
     Active Substance: ACETAMINOPHEN
     Route: 065
     Dates: start: 20140403, end: 20140403
  47. METHYLPREDNISOLON [Concomitant]
     Active Substance: METHYLPREDNISOLONE
     Route: 065
     Dates: start: 20140204, end: 20140204
  48. OBINUTUZUMAB [Suspect]
     Active Substance: OBINUTUZUMAB
     Indication: DIFFUSE LARGE B-CELL LYMPHOMA
     Dosage: DATE OF MOST RECENT DOSE (VOLUME : 250 ML AND DOSE CONCENTRATION : 4 MG/ML) PRIOR TO FIRST EPISODE N
     Route: 042
     Dates: start: 20140128
  49. VINCRISTINE [Suspect]
     Active Substance: VINCRISTINE
     Indication: DIFFUSE LARGE B-CELL LYMPHOMA
     Dosage: DATE OF MOST RECENT DOSE (2 MG) PRIOR TO FIRST EPISODE NEUTROPENIA: 18/FEB/2014?DATE OF MOST RECENT
     Route: 040
     Dates: start: 20140128
  50. METHYLPREDNISOLON [Concomitant]
     Active Substance: METHYLPREDNISOLONE
     Indication: PREMEDICATION
     Route: 065
     Dates: start: 20140128, end: 20140128
  51. METHYLPREDNISOLON [Concomitant]
     Active Substance: METHYLPREDNISOLONE
     Route: 065
     Dates: start: 20140218, end: 20140218
  52. METHYLPREDNISOLON [Concomitant]
     Active Substance: METHYLPREDNISOLONE
     Route: 065
     Dates: start: 20140515, end: 20140515
  53. CEDAX [Concomitant]
     Active Substance: CEFTIBUTEN DIHYDRATE
     Route: 065
     Dates: start: 20140509, end: 20140513
  54. DIPHENHYDRAMINE. [Concomitant]
     Active Substance: DIPHENHYDRAMINE
     Indication: PREMEDICATION

REACTIONS (1)
  - Neutropenia [Recovered/Resolved]

NARRATIVE: CASE EVENT DATE: 20140218
